FAERS Safety Report 18936246 (Version 2)
Quarter: 2022Q1

REPORT INFORMATION
  Report Type: Spontaneous
  Country: US (occurrence: US)
  Receive Date: 20210224
  Receipt Date: 20220120
  Transmission Date: 20220423
  Serious: No
  Sender: FDA-Public Use
  Company Number: US-TERSERA THERAPEUTICS LLC-2020TRS002446

PATIENT

DRUGS (9)
  1. PRIALT [Suspect]
     Active Substance: ZICONOTIDE ACETATE
     Indication: Product used for unknown indication
     Dosage: 6.486 MCG, QD (10.0 MCG/ML)
     Route: 037
  2. PRIALT [Suspect]
     Active Substance: ZICONOTIDE ACETATE
     Dosage: 8 MCG, QD (CONCENTRATION 5 MCG/ML)
     Route: 037
  3. PRIALT [Suspect]
     Active Substance: ZICONOTIDE ACETATE
     Dosage: 2.549 MCG, QD (CONCENTRATION:10.0 MCG/ML)
     Route: 037
  4. MORPHINE [Suspect]
     Active Substance: MORPHINE
     Indication: Product used for unknown indication
     Dosage: 19.4 MG, QD
     Route: 037
  5. MORPHINE [Suspect]
     Active Substance: MORPHINE
     Dosage: 2 MG, QD (CONCENTRATION 12.5)
     Route: 037
  6. MORPHINE [Suspect]
     Active Substance: MORPHINE
     Dosage: 6.373 MG, QD (CONCENTRATION: 25.0 MG/ML)
     Route: 037
  7. BACLOFEN [Suspect]
     Active Substance: BACLOFEN
     Indication: Product used for unknown indication
     Dosage: 55.127 MCG, QD
     Route: 037
  8. BACLOFEN [Suspect]
     Active Substance: BACLOFEN
     Dosage: 8 MCG, QD (CONCENTRATION 50 MCG/ML)
     Route: 037
  9. BACLOFEN [Suspect]
     Active Substance: BACLOFEN
     Dosage: 25.49 MCG, QD (CONCENTRATION:100.0 MCG/ML)
     Route: 037

REACTIONS (3)
  - Medical device site pain [Recovered/Resolved]
  - Off label use [Unknown]
  - Drug ineffective [Unknown]

NARRATIVE: CASE EVENT DATE: 20200601
